FAERS Safety Report 15756865 (Version 1)
Quarter: 2018Q4

REPORT INFORMATION
  Report Type: Spontaneous
  Country: CN (occurrence: CN)
  Receive Date: 20181224
  Receipt Date: 20181224
  Transmission Date: 20190205
  Serious: Yes (Hospitalization)
  Sender: FDA-Public Use
  Company Number: CN-ASTRAZENECA-2018SF66741

PATIENT
  Sex: Female

DRUGS (3)
  1. PULMICORT RESPULES [Suspect]
     Active Substance: BUDESONIDE
     Indication: COUGH
     Route: 055
     Dates: end: 20181209
  2. CEPHALOSPORINS [Concomitant]
     Active Substance: UNSPECIFIED INGREDIENT
     Route: 042
  3. PULMICORT RESPULES [Suspect]
     Active Substance: BUDESONIDE
     Indication: PNEUMONIA
     Route: 055
     Dates: end: 20181209

REACTIONS (4)
  - Product use in unapproved indication [Unknown]
  - Skin discolouration [Not Recovered/Not Resolved]
  - Off label use [Unknown]
  - Pneumonitis [Unknown]

NARRATIVE: CASE EVENT DATE: 20181209
